FAERS Safety Report 9870557 (Version 1)
Quarter: 2014Q1

REPORT INFORMATION
  Report Type: Spontaneous
  Country: US (occurrence: US)
  Receive Date: 20140205
  Receipt Date: 20140205
  Transmission Date: 20141002
  Serious: No
  Sender: FDA-Public Use
  Company Number: US-B.I. PHARMACEUTICALS,INC./RIDGEFIELD-2014-BI-04253BP

PATIENT
  Age: 25 Year
  Sex: Female
  Weight: 52 kg

DRUGS (1)
  1. DULCOLAX STOOL SOFTENER [Suspect]
     Indication: FAECES HARD
     Dosage: 200 MG
     Route: 048
     Dates: start: 201301

REACTIONS (1)
  - Diarrhoea [Recovered/Resolved]
